FAERS Safety Report 4589215-X (Version None)
Quarter: 2005Q1

REPORT INFORMATION
  Report Type: 
  Country: None (occurrence: None)
  Receive Date: 20050214
  Receipt Date: 20050214
  Transmission Date: 20050727
  Serious: Yes (Other)
  Sender: FDA-Public Use
  Company Number: None

PATIENT
  Age: 60 Year
  Sex: Male
  Weight: 77.1115 kg

DRUGS (3)
  1. CYMBALTA [Suspect]
     Indication: NEUROPATHY
     Dosage: 1 PER DAY 7 DAYS
     Dates: start: 20050201, end: 20050210
  2. CYMBALTA [Suspect]
     Indication: PAIN MANAGEMENT
     Dosage: 1 PER DAY 7 DAYS
     Dates: start: 20050201, end: 20050210
  3. DUPRAGESIC [Concomitant]

REACTIONS (3)
  - DRUG INTOLERANCE [None]
  - GASTROINTESTINAL DISORDER [None]
  - NAUSEA [None]
